FAERS Safety Report 26151506 (Version 2)
Quarter: 2025Q4

REPORT INFORMATION
  Report Type: Spontaneous
  Country: JP (occurrence: JP)
  Receive Date: 20251212
  Receipt Date: 20251231
  Transmission Date: 20260118
  Serious: Yes (Hospitalization)
  Sender: UCB
  Company Number: JP-UCBJ-CD202516161UCBPHAPROD

PATIENT
  Age: 7 Decade

DRUGS (1)
  1. BIMZELX [Suspect]
     Active Substance: BIMEKIZUMAB-BKZX
     Indication: Erythrodermic psoriasis
     Dosage: UNK UNK, EV 8 WEEKS

REACTIONS (1)
  - Rash pustular [Recovered/Resolved]
